FAERS Safety Report 24795906 (Version 2)
Quarter: 2025Q1

REPORT INFORMATION
  Report Type: Report from Study
  Country: US (occurrence: US)
  Receive Date: 20250101
  Receipt Date: 20250102
  Transmission Date: 20250409
  Serious: Yes (Hospitalization)
  Sender: ACADIA PHARMACEUTICALS
  Company Number: US-ACADIA PHARMACEUTICALS INC.-ACA-2024-PIM-008938

PATIENT
  Age: 72 Year
  Sex: Male

DRUGS (18)
  1. NUPLAZID [Suspect]
     Active Substance: PIMAVANSERIN TARTRATE
     Indication: Parkinson^s disease psychosis
     Dosage: 34 MILLIGRAM, QD
     Route: 048
     Dates: start: 20240416
  2. ASCORBIC ACID [Concomitant]
     Active Substance: ASCORBIC ACID
  3. ASPIRIN [Concomitant]
     Active Substance: ASPIRIN
  4. CARBIDOPA LEVODOPA [Concomitant]
     Active Substance: CARBIDOPA\LEVODOPA
  5. CHOLECALCIFEROL [Concomitant]
     Active Substance: CHOLECALCIFEROL
  6. CYANOCOBALAMIN [Concomitant]
     Active Substance: CYANOCOBALAMIN
  7. FLUTICASONE [Concomitant]
     Active Substance: FLUTICASONE
  8. HYDROCHLOROTHIAZIDE [Concomitant]
     Active Substance: HYDROCHLOROTHIAZIDE
  9. LISINOPRIL [Concomitant]
     Active Substance: LISINOPRIL
  10. MAGNESIUM [Concomitant]
     Active Substance: MAGNESIUM
  11. MELATONIN [Concomitant]
     Active Substance: MELATONIN
  12. VITAMINS [Concomitant]
     Active Substance: VITAMINS
  13. PRAVASTATIN [Concomitant]
     Active Substance: PRAVASTATIN
  14. RIVASTIGMINE [Concomitant]
     Active Substance: RIVASTIGMINE
  15. SERTRALINE [Concomitant]
     Active Substance: SERTRALINE HYDROCHLORIDE
  16. HERBALS\TURMERIC [Concomitant]
     Active Substance: HERBALS\TURMERIC
  17. FOLIC ACID [Concomitant]
     Active Substance: FOLIC ACID
  18. XIIDRA [Concomitant]
     Active Substance: LIFITEGRAST

REACTIONS (1)
  - COVID-19 [Recovered/Resolved]

NARRATIVE: CASE EVENT DATE: 20241227
